FAERS Safety Report 13458311 (Version 12)
Quarter: 2018Q4

REPORT INFORMATION
  Report Type: Report from Study
  Country: US (occurrence: CA)
  Receive Date: 20170419
  Receipt Date: 20181004
  Transmission Date: 20190204
  Serious: Yes (Other)
  Sender: FDA-Public Use
  Company Number: US-SUNOVION-2017SUN001654

PATIENT
  Age: 52 Year
  Sex: Male

DRUGS (24)
  1. XOLAIR [Suspect]
     Active Substance: OMALIZUMAB
     Dosage: UNK, REGIMEN #8
     Route: 058
     Dates: start: 20170920
  2. XOLAIR [Suspect]
     Active Substance: OMALIZUMAB
     Dosage: 6UNK, REGIMEN #16
     Route: 058
     Dates: start: 20180521
  3. XOLAIR [Suspect]
     Active Substance: OMALIZUMAB
     Dosage: 375 MG, BIW, REGIMEN #18
     Route: 058
     Dates: start: 20180808
  4. ADVAIR HFA [Concomitant]
     Active Substance: FLUTICASONE PROPIONATE\SALMETEROL XINAFOATE
     Dosage: 2 UNK, UNK
     Dates: start: 20140101
  5. SPIRIVA [Concomitant]
     Active Substance: TIOTROPIUM BROMIDE MONOHYDRATE
     Dosage: 1 DF, UNK
  6. XOLAIR [Suspect]
     Active Substance: OMALIZUMAB
     Indication: ASTHMA
     Dosage: 375 MG, BIW (REGIMEN #1)
     Route: 058
     Dates: start: 20160923
  7. XOLAIR [Suspect]
     Active Substance: OMALIZUMAB
     Dosage: UNK, REGIMEN #3
     Route: 058
     Dates: start: 20170301
  8. XOLAIR [Suspect]
     Active Substance: OMALIZUMAB
     Dosage: UNK, REGIMEN #10
     Route: 058
     Dates: start: 20171017
  9. XOLAIR [Suspect]
     Active Substance: OMALIZUMAB
     Dosage: UNK, REGIMEN #11
     Route: 058
     Dates: start: 20171101
  10. XOLAIR [Suspect]
     Active Substance: OMALIZUMAB
     Dosage: UNK
     Route: 058
     Dates: start: 20180321
  11. XOLAIR [Suspect]
     Active Substance: OMALIZUMAB
     Dosage: UNK, REGIMEN #14
     Route: 058
     Dates: start: 20180502
  12. XOLAIR [Suspect]
     Active Substance: OMALIZUMAB
     Dosage: UNK, REGIMEN #2
     Route: 058
     Dates: start: 20170213
  13. XOLAIR [Suspect]
     Active Substance: OMALIZUMAB
     Dosage: UNK, REGIMEN #4
     Route: 058
     Dates: start: 20170310
  14. XOLAIR [Suspect]
     Active Substance: OMALIZUMAB
     Dosage: UNK, REGIMEN #15
     Route: 058
     Dates: start: 20180502
  15. XOLAIR [Suspect]
     Active Substance: OMALIZUMAB
     Dosage: UNK, REGIMEN #13
     Route: 058
     Dates: start: 20171213
  16. XOLAIR [Suspect]
     Active Substance: OMALIZUMAB
     Dosage: 375 MG, BIW, REGIMEN #17
     Route: 058
     Dates: start: 20180808
  17. GLYCOPYRROLATE. [Suspect]
     Active Substance: GLYCOPYRROLATE
     Indication: PRODUCT USED FOR UNKNOWN INDICATION
     Dosage: 1 DF, QD
     Route: 055
     Dates: start: 20160501
  18. XOLAIR [Suspect]
     Active Substance: OMALIZUMAB
     Dosage: UNK, REGIMEN #5
     Route: 058
     Dates: start: 20170324
  19. XOLAIR [Suspect]
     Active Substance: OMALIZUMAB
     Dosage: 375 MG, BIW REGIMENT #7
     Route: 058
     Dates: start: 20170906
  20. XOLAIR [Suspect]
     Active Substance: OMALIZUMAB
     Dosage: UNK, REGIMEN #9
     Route: 058
     Dates: start: 20171004
  21. XOLAIR [Suspect]
     Active Substance: OMALIZUMAB
     Dosage: UNK, REGIMEN #12
     Route: 058
     Dates: start: 20171129
  22. VENTOLIN [Concomitant]
     Active Substance: ALBUTEROL SULFATE
     Dosage: 2 DF, PRN
     Dates: start: 20060101
  23. ASMANEX [Concomitant]
     Active Substance: MOMETASONE FUROATE
     Dosage: 1 DF, UNK
     Route: 048
     Dates: start: 20140101
  24. XOLAIR [Suspect]
     Active Substance: OMALIZUMAB
     Dosage: UNK, REGIMEN #6
     Route: 058
     Dates: start: 20170419

REACTIONS (18)
  - Influenza [Unknown]
  - Heart rate increased [Unknown]
  - Fall [Unknown]
  - Contusion [Unknown]
  - Lower limb fracture [Unknown]
  - Hypertension [Not Recovered/Not Resolved]
  - Tendon injury [Unknown]
  - Cough [Unknown]
  - Pruritus [Unknown]
  - Tachycardia [Unknown]
  - Malaise [Unknown]
  - Wound [Unknown]
  - Peripheral swelling [Unknown]
  - Diverticulum [Unknown]
  - Limb injury [Unknown]
  - Oedematous kidney [Unknown]
  - Localised infection [Unknown]
  - Pain in extremity [Unknown]

NARRATIVE: CASE EVENT DATE: 201612
